FAERS Safety Report 4311994-7 (Version None)
Quarter: 2004Q1

REPORT INFORMATION
  Report Type: 
  Country: None (occurrence: None)
  Receive Date: 20040305
  Receipt Date: 20030924
  Transmission Date: 20041129
  Serious: No
  Sender: FDA-Public Use
  Company Number: US-GLAXOSMITHKLINE-A0427341A

PATIENT
  Age: 79 Year
  Sex: Male

DRUGS (9)
  1. REQUIP [Suspect]
     Dosage: 1MG AT NIGHT
     Route: 048
     Dates: start: 20030301
  2. ZYRTEC [Concomitant]
     Dosage: 10MG PER DAY
     Route: 048
  3. LEVOTHYROXIN [Concomitant]
     Dosage: 100MG PER DAY
     Route: 048
  4. FLONASE [Concomitant]
     Dosage: 2SPR AT NIGHT
     Route: 045
  5. ZOCOR [Concomitant]
     Dosage: 40MG PER DAY
     Route: 048
  6. DEPAKOTE [Concomitant]
     Dosage: 500MG PER DAY
     Route: 048
  7. NAPROSYN [Concomitant]
     Dosage: 1TAB THREE TIMES PER DAY
     Route: 048
  8. ALBUTEROL [Concomitant]
     Dosage: .5CC FOUR TIMES PER DAY
     Route: 055
  9. LORAZEPAM [Concomitant]
     Indication: ANXIETY
     Dosage: 1MG AS REQUIRED
     Route: 048

REACTIONS (2)
  - AGITATION [None]
  - INSOMNIA [None]
